FAERS Safety Report 9343797 (Version 1)
Quarter: 2013Q2

REPORT INFORMATION
  Report Type: Spontaneous
  Country: GB (occurrence: None)
  Receive Date: 20130610
  Receipt Date: 20130610
  Transmission Date: 20140414
  Serious: Yes (Life-Threatening, Hospitalization)
  Sender: FDA-Public Use
  Company Number: AUR-APL-2013-04490

PATIENT
  Age: 77 Year
  Sex: Male
  Weight: 110 kg

DRUGS (10)
  1. SIMVASTATIN (SIMVASTATIN) [Suspect]
     Indication: BLOOD CHOLESTEROL INCREASED
     Dosage: 40 MG (40 MG, 1 IN 1 D), ORAL
     Route: 048
  2. AMLODIPINE (AMLODIPINE) [Concomitant]
  3. ASPIRIN (ACETYLSALICYLIC ACID) [Concomitant]
  4. ATENOLOL (ATENOLOL) [Concomitant]
  5. BICALUTAMIDE (BICALUTAMIDE) [Concomitant]
  6. CITALOPRAM (CITALOPRAM) [Concomitant]
  7. ISOSORBIDE (ISOSORBIDE) [Concomitant]
  8. OLANZAPINE (OLANZAPINE) [Concomitant]
  9. SOLIFENACIN [Concomitant]
  10. TAMSULOSIN (TAMSULOSIN) [Concomitant]

REACTIONS (3)
  - Urosepsis [None]
  - Renal failure acute [None]
  - Rhabdomyolysis [None]
